FAERS Safety Report 14452709 (Version 1)
Quarter: 2018Q1

REPORT INFORMATION
  Report Type: Spontaneous
  Country: US (occurrence: US)
  Receive Date: 20180126
  Receipt Date: 20180126
  Transmission Date: 20180509
  Serious: Yes (Hospitalization)
  Sender: FDA-Public Use
  Company Number: None

PATIENT
  Age: 21 Year
  Sex: Female

DRUGS (4)
  1. CLOBETASOL [Concomitant]
     Active Substance: CLOBETASOL
  2. ORENCIA [Suspect]
     Active Substance: ABATACEPT
     Indication: RHEUMATOID ARTHRITIS
     Route: 058
     Dates: start: 201612
  3. COLCHICINE. [Concomitant]
     Active Substance: COLCHICINE
  4. RANATADINE [Concomitant]

REACTIONS (2)
  - Drug dose omission [None]
  - Constipation [None]

NARRATIVE: CASE EVENT DATE: 20180106
